FAERS Safety Report 23576917 (Version 1)
Quarter: 2024Q1

REPORT INFORMATION
  Report Type: Other
  Country: US (occurrence: None)
  Receive Date: 20240228
  Receipt Date: 20240228
  Transmission Date: 20240409
  Serious: Yes (Death)
  Sender: FDA-Public Use
  Company Number: US-ROCHE-3515864

PATIENT

DRUGS (7)
  1. RITUXIMAB [Suspect]
     Active Substance: RITUXIMAB
     Indication: Central nervous system lymphoma
     Dosage: 6 CYCLES
     Route: 042
  2. METHOTREXATE [Suspect]
     Active Substance: METHOTREXATE
     Indication: Central nervous system lymphoma
     Dosage: 3.5 G/M2 RECEIVED 6 CYCLES
     Route: 042
  3. ORELABRUTINIB [Suspect]
     Active Substance: ORELABRUTINIB
     Indication: Central nervous system lymphoma
     Dosage: 6 CYCLES
     Route: 048
  4. THIOTEPA [Suspect]
     Active Substance: THIOTEPA
     Indication: Central nervous system lymphoma
     Dosage: 30-40 MG/M 2 RECEIVED 6 CYCLES
     Route: 042
  5. BUSULFAN [Concomitant]
     Active Substance: BUSULFAN
     Dosage: ON DAYS -5, -4
     Route: 065
  6. CYTARABINE [Concomitant]
     Active Substance: CYTARABINE
     Dosage: 2 G/M2  ON DAYS -3 AND -2
     Route: 065
  7. THIOTEPA [Concomitant]
     Active Substance: THIOTEPA
     Dosage: ON DAYS -7 AND -6
     Route: 065

REACTIONS (2)
  - COVID-19 [Fatal]
  - Neutrophil count decreased [Recovered/Resolved]
